FAERS Safety Report 21281136 (Version 1)
Quarter: 2022Q3

REPORT INFORMATION
  Report Type: Report from Study
  Country: US (occurrence: US)
  Receive Date: 20220901
  Receipt Date: 20220901
  Transmission Date: 20221027
  Serious: Yes (Death, Other)
  Sender: FDA-Public Use
  Company Number: US-GW PHARMA-2022-US-028322

PATIENT
  Age: 26 Year
  Sex: Male

DRUGS (1)
  1. EPIDIOLEX [Suspect]
     Active Substance: CANNABIDIOL
     Indication: Lennox-Gastaut syndrome
     Dosage: 10 MILLIGRAM
     Route: 048
     Dates: start: 20190725

REACTIONS (1)
  - Death [Fatal]

NARRATIVE: CASE EVENT DATE: 20220825
